FAERS Safety Report 4620955-X (Version None)
Quarter: 2005Q1

REPORT INFORMATION
  Report Type: 
  Country: None (occurrence: None)
  Receive Date: 20050325
  Receipt Date: 20050315
  Transmission Date: 20050727
  Serious: Yes (Hospitalization)
  Sender: FDA-Public Use
  Company Number: HQWYE145415MAR05

PATIENT
  Age: 84 Year
  Sex: Male

DRUGS (8)
  1. CORDARONE [Suspect]
     Indication: ATRIAL FIBRILLATION
     Dosage: 900 MG 1X PER 1 DAY; INTRAVENOUS
     Route: 042
     Dates: start: 20050208, end: 20050208
  2. CORDARONE [Suspect]
     Indication: ATRIAL FLUTTER
     Dosage: 900 MG 1X PER 1 DAY; INTRAVENOUS
     Route: 042
     Dates: start: 20050208, end: 20050208
  3. CORDARONE [Suspect]
     Dosage: 900 MG 1X PER 1 DAY; INTRAVENOUS (SEE IMAGE)
     Route: 042
     Dates: start: 20050210, end: 20050210
  4. CORDARONE [Suspect]
     Dosage: 900 MG 1X PER 1 DAY; INTRAVENOUS (SEE IMAGE)
     Route: 042
     Dates: start: 20050211, end: 20050211
  5. CORDARONE [Suspect]
     Indication: ATRIAL FIBRILLATION
     Dosage: 200 MG 1X PER 1 DAY; ORAL
     Route: 048
     Dates: start: 20050212, end: 20050216
  6. CORDARONE [Suspect]
     Indication: ATRIAL FLUTTER
     Dosage: 200 MG 1X PER 1 DAY; ORAL
     Route: 048
     Dates: start: 20050212, end: 20050216
  7. TAZOCILLINE (PIPERACILLIN/TAZOBACTAM) [Concomitant]
  8. AMIKLIN (AMIKACIN) [Concomitant]

REACTIONS (1)
  - CHOLESTASIS [None]
